FAERS Safety Report 7821489-1 (Version None)
Quarter: 2011Q4

REPORT INFORMATION
  Report Type: 
  Country: None (occurrence: None)
  Receive Date: 20111018
  Receipt Date: 20111011
  Transmission Date: 20120403
  Serious: Yes (Other)
  Sender: FDA-Public Use
  Company Number: PHHY2011GB89597

PATIENT
  Sex: Male
  Weight: 110 kg

DRUGS (3)
  1. RAMIPRIL [Concomitant]
     Indication: HYPERTENSION
     Dosage: UNK
     Dates: start: 20110906
  2. ALLOPURINOL [Concomitant]
     Indication: GOUT
     Dosage: 300 MG, UNK
  3. SIMVASTATIN [Suspect]
     Indication: HYPERCHOLESTEROLAEMIA
     Dosage: 40 MG, DAILY
     Route: 048
     Dates: start: 20110905, end: 20110923

REACTIONS (2)
  - PAIN IN EXTREMITY [None]
  - VISION BLURRED [None]
